FAERS Safety Report 10181655 (Version 2)
Quarter: 2014Q2

REPORT INFORMATION
  Report Type: Spontaneous
  Country: FR (occurrence: FR)
  Receive Date: 20140519
  Receipt Date: 20140529
  Transmission Date: 20141212
  Serious: Yes (Hospitalization)
  Sender: FDA-Public Use
  Company Number: FR-ACTAVIS-2014-09988

PATIENT
  Age: 79 Year
  Sex: Male

DRUGS (23)
  1. GABAPENTIN ARROW [Suspect]
     Indication: PRODUCT USED FOR UNKNOWN INDICATION
     Dosage: 1 DF, DAILY
     Route: 048
     Dates: start: 20121019, end: 20121019
  2. GABAPENTIN ARROW [Suspect]
     Dosage: 600 MG, SINGLE
     Route: 048
     Dates: start: 20121016, end: 20121016
  3. SODIUM HEPARIN [Suspect]
     Indication: EXTRACORPOREAL CIRCULATION
     Dosage: 24000 DF, DAILY
     Route: 042
     Dates: start: 20121018, end: 20121018
  4. PLAVIX [Suspect]
     Indication: CARDIOVASCULAR EVENT PROPHYLAXIS
     Dosage: 75 MG, DAILY
     Route: 048
  5. MIDAZOLAM [Suspect]
     Indication: ANAESTHESIA
     Dosage: UNK
     Route: 042
     Dates: start: 20121018, end: 20121018
  6. KETAMINE [Suspect]
     Indication: ANAESTHESIA
     Dosage: UNK
     Route: 042
     Dates: start: 20121018, end: 20121018
  7. ULTIVA [Suspect]
     Indication: ANAESTHESIA
     Dosage: UNK
     Route: 042
     Dates: start: 20121018, end: 20121018
  8. PROTAMINE CHOAY [Suspect]
     Indication: PRODUCT USED FOR UNKNOWN INDICATION
     Dosage: UNK
     Route: 042
     Dates: start: 20121018, end: 20121018
  9. EXACYL [Suspect]
     Indication: HAEMORRHAGE PROPHYLAXIS
     Dosage: UNK
     Route: 042
     Dates: start: 20121018, end: 20121018
  10. NEBIVOLOL EG [Suspect]
     Dosage: 1 DF, DAILY
     Route: 048
     Dates: end: 20121018
  11. PROPOFOL LIPURO [Suspect]
     Indication: ANAESTHESIA
     Dosage: UNK
     Route: 042
     Dates: start: 20121018, end: 20121018
  12. LEXOMIL [Suspect]
     Indication: ANXIETY
     Dosage: 0.5 DF, DAILY
     Route: 048
  13. SUFENTANIL [Suspect]
     Indication: ANAESTHESIA
     Dosage: UNK
     Route: 042
     Dates: start: 20121018, end: 20121018
  14. ESMERON [Suspect]
     Indication: ANAESTHESIA
     Dosage: UNK
     Route: 042
     Dates: start: 20121018, end: 20121018
  15. ZINNAT                             /00454601/ [Suspect]
     Indication: ANTIBIOTIC THERAPY
     Dosage: UNK
     Route: 042
     Dates: start: 20121018, end: 20121018
  16. LYRICA [Concomitant]
     Indication: PRODUCT USED FOR UNKNOWN INDICATION
     Dosage: 100 MG, BID
     Route: 048
  17. MIANSERINE ARROW [Concomitant]
     Indication: ANXIETY
     Dosage: 30 MG, DAILY
     Route: 048
  18. MIANSERINE ARROW [Concomitant]
     Indication: DEPRESSION
  19. INEGY [Concomitant]
     Indication: PRODUCT USED FOR UNKNOWN INDICATION
     Dosage: 10/20 1 DF IN EVENING
     Route: 065
  20. TEMERIT [Concomitant]
     Indication: PRODUCT USED FOR UNKNOWN INDICATION
     Dosage: 5 MG, DAILY
     Route: 065
  21. IPERTEN [Concomitant]
     Indication: PRODUCT USED FOR UNKNOWN INDICATION
     Dosage: 10 MG, DAILY
     Route: 065
  22. NISISCO [Concomitant]
     Indication: PRODUCT USED FOR UNKNOWN INDICATION
     Dosage: 160/25 MG, DAILY
     Route: 065
  23. ATARAX                             /00058401/ [Concomitant]
     Indication: ANXIETY
     Dosage: 50 MG, BID
     Route: 048
     Dates: start: 20121017, end: 20121020

REACTIONS (1)
  - Post procedural haemorrhage [Recovered/Resolved]
